FAERS Safety Report 21430110 (Version 2)
Quarter: 2022Q4

REPORT INFORMATION
  Report Type: Spontaneous
  Country: US (occurrence: US)
  Receive Date: 20221009
  Receipt Date: 20221031
  Transmission Date: 20230113
  Serious: No
  Sender: FDA-Public Use
  Company Number: US-TEVA-2022-US-2081195

PATIENT
  Age: 63 Year
  Sex: Female
  Weight: 99.79 kg

DRUGS (1)
  1. AJOVY [Suspect]
     Active Substance: FREMANEZUMAB-VFRM
     Indication: Migraine
     Dosage: STRENGTH:   225MG;DOSAGE:-1.5,MONTHLY
     Route: 065
     Dates: start: 20220820

REACTIONS (8)
  - Dry mouth [Recovering/Resolving]
  - Swollen tongue [Recovering/Resolving]
  - Dysphonia [Not Recovered/Not Resolved]
  - Inappropriate schedule of product administration [Unknown]
  - Product storage error [Unknown]
  - Flushing [Unknown]
  - Tongue discolouration [Unknown]
  - Throat irritation [Unknown]

NARRATIVE: CASE EVENT DATE: 20220901
